FAERS Safety Report 10064794 (Version 3)
Quarter: 2014Q2

REPORT INFORMATION
  Report Type: Report from Study
  Country: FR (occurrence: FR)
  Receive Date: 20140408
  Receipt Date: 20140521
  Transmission Date: 20141212
  Serious: Yes (Hospitalization, Other)
  Sender: FDA-Public Use
  Company Number: FR-JNJFOC-20140401826

PATIENT
  Age: 16 Year
  Sex: Male
  Weight: 49.7 kg

DRUGS (7)
  1. REMICADE [Suspect]
     Indication: CROHN^S DISEASE
     Route: 042
     Dates: start: 20100301, end: 20120608
  2. REMICADE [Suspect]
     Indication: CROHN^S DISEASE
     Route: 042
     Dates: start: 20130201, end: 20130215
  3. HUMIRA [Concomitant]
     Indication: CROHN^S DISEASE
     Route: 065
     Dates: start: 201311
  4. HUMIRA [Concomitant]
     Indication: CROHN^S DISEASE
     Route: 065
     Dates: start: 20130222, end: 20130321
  5. HUMIRA [Concomitant]
     Indication: CROHN^S DISEASE
     Route: 065
  6. AZATHIOPRINE [Concomitant]
     Indication: CROHN^S DISEASE
     Route: 065
  7. PARENTERAL NUTRITION [Concomitant]
     Indication: CROHN^S DISEASE
     Route: 051

REACTIONS (1)
  - Staphylococcal sepsis [Recovered/Resolved]
